FAERS Safety Report 5287756-3 (Version None)
Quarter: 2007Q2

REPORT INFORMATION
  Report Type: 
  Country: None (occurrence: None)
  Receive Date: 20070402
  Receipt Date: 20070402
  Transmission Date: 20071010
  Serious: No
  Sender: FDA-Public Use
  Company Number: None

PATIENT
  Age: 48 Year
  Sex: Female
  Weight: 53.0709 kg

DRUGS (1)
  1. ZYCAM STANDARD OVER THE COUNTER [Suspect]
     Indication: NASOPHARYNGITIS
     Dosage: PER LABEL NASAL
     Route: 045
     Dates: start: 20050324, end: 20050324

REACTIONS (2)
  - ANOSMIA [None]
  - RHINALGIA [None]
